FAERS Safety Report 15757899 (Version 1)
Quarter: 2018Q4

REPORT INFORMATION
  Report Type: Spontaneous
  Country: US (occurrence: US)
  Receive Date: 20181225
  Receipt Date: 20181225
  Transmission Date: 20190205
  Serious: Yes (Life-Threatening, Hospitalization, Other)
  Sender: FDA-Public Use
  Company Number: US-AUROBINDO-AUR-APL-2018-060121

PATIENT
  Age: 61 Year
  Sex: Male

DRUGS (1)
  1. AMIODARONE HYDROCHLORIDE. [Suspect]
     Active Substance: AMIODARONE HYDROCHLORIDE
     Indication: PRODUCT USED FOR UNKNOWN INDICATION
     Dosage: 1 UNK,IN TOTAL,ONE DOSE OF AMIODARONE
     Route: 065

REACTIONS (3)
  - Cardiac failure [Unknown]
  - Hyperthyroidism [Recovered/Resolved]
  - Ventricular arrhythmia [Unknown]
